FAERS Safety Report 6042608-6 (Version None)
Quarter: 2009Q1

REPORT INFORMATION
  Report Type: 
  Country: None (occurrence: None)
  Receive Date: 20090119
  Receipt Date: 20090105
  Transmission Date: 20090719
  Serious: Yes (Other)
  Sender: FDA-Public Use
  Company Number: US-BAYER-200910534GPV

PATIENT

DRUGS (3)
  1. SORAFENIB [Suspect]
     Indication: NEOPLASM
     Route: 048
  2. CARBOPLATIN [Suspect]
     Indication: NEOPLASM
     Route: 065
  3. PEMETREXED [Suspect]
     Indication: NEOPLASM
     Route: 065

REACTIONS (3)
  - DRUG TOXICITY [None]
  - HYPOGLYCAEMIA [None]
  - HYPONATRAEMIA [None]
